FAERS Safety Report 15850285 (Version 1)
Quarter: 2019Q1

REPORT INFORMATION
  Report Type: Spontaneous
  Country: US (occurrence: US)
  Receive Date: 20190121
  Receipt Date: 20190121
  Transmission Date: 20190417
  Serious: No
  Sender: FDA-Public Use
  Company Number: US-PFIZER INC-2019019317

PATIENT
  Age: 50 Year
  Sex: Male
  Weight: 108.86 kg

DRUGS (1)
  1. VIAGRA [Suspect]
     Active Substance: SILDENAFIL CITRATE
     Indication: ERECTILE DYSFUNCTION
     Dosage: 25 MG, ONCE DAILY
     Route: 048

REACTIONS (2)
  - Ejaculation disorder [Not Recovered/Not Resolved]
  - Spontaneous penile erection [Not Recovered/Not Resolved]

NARRATIVE: CASE EVENT DATE: 201807
